FAERS Safety Report 11816086 (Version 5)
Quarter: 2016Q4

REPORT INFORMATION
  Report Type: Report from Study
  Country: US (occurrence: US)
  Receive Date: 20151209
  Receipt Date: 20161226
  Transmission Date: 20170206
  Serious: Yes (Hospitalization)
  Sender: FDA-Public Use
  Company Number: PHHO2015US020147

PATIENT
  Age: 27 Year
  Sex: Female
  Weight: 47 kg

DRUGS (4)
  1. ZYRTEC [Concomitant]
     Active Substance: CETIRIZINE HYDROCHLORIDE
     Indication: SEASONAL ALLERGY
     Dosage: 10 MG, PRN
     Route: 065
     Dates: start: 2008
  2. GILENYA [Suspect]
     Active Substance: FINGOLIMOD HYDROCHLORIDE
     Dosage: 0.5 MG, QD
     Route: 048
     Dates: start: 20151204
  3. TEMAZEPAM. [Concomitant]
     Active Substance: TEMAZEPAM
     Indication: PRODUCT USED FOR UNKNOWN INDICATION
     Dosage: UNK
     Route: 065
  4. GILENYA [Suspect]
     Active Substance: FINGOLIMOD HYDROCHLORIDE
     Indication: MULTIPLE SCLEROSIS
     Dosage: 0.5 MG, QD
     Route: 048
     Dates: start: 20150729, end: 20151126

REACTIONS (11)
  - Dizziness [Recovered/Resolved]
  - Nausea [Unknown]
  - Metabolic acidosis [Recovered/Resolved]
  - Gait disturbance [Unknown]
  - Diarrhoea [Recovered/Resolved]
  - Blood pressure decreased [Unknown]
  - Gastroenteritis [Recovered/Resolved]
  - Vomiting [Unknown]
  - Multiple sclerosis relapse [Recovered/Resolved]
  - Muscular weakness [Unknown]
  - Vertigo [Unknown]

NARRATIVE: CASE EVENT DATE: 20151028
